FAERS Safety Report 25484806 (Version 2)
Quarter: 2025Q3

REPORT INFORMATION
  Report Type: Report from Study
  Country: CA (occurrence: CA)
  Receive Date: 20250626
  Receipt Date: 20250707
  Transmission Date: 20251021
  Serious: Yes (Other)
  Sender: TAKEDA
  Company Number: CA-TAKEDA-2025TUS055884

PATIENT
  Age: 46 Year
  Sex: Male

DRUGS (5)
  1. VEDOLIZUMAB [Suspect]
     Active Substance: VEDOLIZUMAB
     Indication: Colitis ulcerative
  2. VEDOLIZUMAB [Suspect]
     Active Substance: VEDOLIZUMAB
     Dosage: 300 MILLIGRAM, Q6WEEKS
     Dates: start: 20250331
  3. MESALAMINE [Concomitant]
     Active Substance: MESALAMINE
  4. IRON [Concomitant]
     Active Substance: IRON
     Indication: Supplementation therapy
  5. Cortiment [Concomitant]

REACTIONS (1)
  - Intestinal mass [Unknown]

NARRATIVE: CASE EVENT DATE: 20250616
